FAERS Safety Report 17044776 (Version 1)
Quarter: 2019Q4

REPORT INFORMATION
  Report Type: Report from Study
  Country: GB (occurrence: GB)
  Receive Date: 20191118
  Receipt Date: 20191118
  Transmission Date: 20200122
  Serious: Yes (Hospitalization)
  Sender: FDA-Public Use
  Company Number: NVSC2019GB038302

PATIENT
  Age: 66 Year
  Sex: Male

DRUGS (1)
  1. SANDOSTATIN LAR DEPOT [Suspect]
     Active Substance: OCTREOTIDE ACETATE
     Indication: NEUROENDOCRINE TUMOUR
     Dosage: 30 MG, QMO
     Route: 030
     Dates: start: 20190106

REACTIONS (8)
  - Nausea [Unknown]
  - Decreased appetite [Unknown]
  - Abdominal pain [Unknown]
  - Colitis [Unknown]
  - Diarrhoea [Unknown]
  - Discoloured vomit [Unknown]
  - Haematochezia [Unknown]
  - Abdominal pain lower [Unknown]

NARRATIVE: CASE EVENT DATE: 20191106
